FAERS Safety Report 17501572 (Version 7)
Quarter: 2020Q2

REPORT INFORMATION
  Report Type: Spontaneous
  Country: US (occurrence: US)
  Receive Date: 20200305
  Receipt Date: 20200619
  Transmission Date: 20200713
  Serious: Yes (Hospitalization, Other)
  Sender: FDA-Public Use
  Company Number: US-PFIZER INC-2020096331

PATIENT
  Age: 85 Year
  Sex: Male
  Weight: 68.93 kg

DRUGS (7)
  1. BUMEX [Concomitant]
     Active Substance: BUMETANIDE
     Indication: POLYURIA
     Dosage: UNK
     Dates: start: 201902
  2. TUDCA [Concomitant]
     Active Substance: DIETARY SUPPLEMENT\TAUROURSODEOXYCHOLIC ACID
     Indication: SUPPLEMENTATION THERAPY
     Dosage: UNK
     Dates: start: 201902
  3. COREG [Concomitant]
     Active Substance: CARVEDILOL
     Dosage: UNK
     Dates: start: 201902
  4. ATORVASTATIN [Concomitant]
     Active Substance: ATORVASTATIN
     Dosage: UNK
  5. VYNDAQEL [Suspect]
     Active Substance: TAFAMIDIS MEGLUMINE
     Indication: CARDIAC AMYLOIDOSIS
     Dosage: UNK
     Dates: start: 20191009
  6. VYNDAQEL [Suspect]
     Active Substance: TAFAMIDIS MEGLUMINE
     Indication: AMYLOIDOSIS
     Dosage: 4 DF, 1X/DAY (4 PILLS ONCE A DAY)
     Dates: start: 201912
  7. VYNDAQEL [Suspect]
     Active Substance: TAFAMIDIS MEGLUMINE
     Dosage: 4 DF, DAILY
     Dates: start: 202003

REACTIONS (13)
  - Stenosis [Not Recovered/Not Resolved]
  - Disease recurrence [Unknown]
  - Pain in extremity [Unknown]
  - Deformity [Unknown]
  - Disorientation [Unknown]
  - Back pain [Unknown]
  - Back disorder [Not Recovered/Not Resolved]
  - Renal impairment [Recovered/Resolved]
  - Dizziness postural [Unknown]
  - Pancreatic disorder [Unknown]
  - Musculoskeletal chest pain [Unknown]
  - Platelet count decreased [Unknown]
  - Arthralgia [Unknown]

NARRATIVE: CASE EVENT DATE: 20200409
